APPROVED DRUG PRODUCT: FUROSEMIDE
Active Ingredient: FUROSEMIDE
Strength: 80MG
Dosage Form/Route: TABLET;ORAL
Application: A071594 | Product #001
Applicant: ANI PHARMACEUTICALS INC
Approved: Feb 9, 1988 | RLD: No | RS: No | Type: DISCN